FAERS Safety Report 6394653-9 (Version None)
Quarter: 2009Q4

REPORT INFORMATION
  Report Type: 
  Country: None (occurrence: None)
  Receive Date: 20091009
  Receipt Date: 20091005
  Transmission Date: 20100525
  Serious: Yes (Other)
  Sender: FDA-Public Use
  Company Number: US-JNJFOC-20090904442

PATIENT
  Sex: Male
  Weight: 99.79 kg

DRUGS (4)
  1. LEVAQUIN [Suspect]
     Indication: SEPSIS
     Route: 048
     Dates: start: 20090827, end: 20090905
  2. LOPRESSOR [Concomitant]
     Indication: HYPERTENSION
     Route: 065
  3. NORVASC [Concomitant]
     Indication: HYPERTENSION
     Route: 065
  4. NEXIUM [Concomitant]
     Indication: GASTRIC DISORDER
     Route: 065

REACTIONS (2)
  - NERVE INJURY [None]
  - PARAESTHESIA [None]
